FAERS Safety Report 22604730 (Version 1)
Quarter: 2023Q2

REPORT INFORMATION
  Report Type: Spontaneous
  Country: None (occurrence: FR)
  Receive Date: 20230615
  Receipt Date: 20230615
  Transmission Date: 20230722
  Serious: Yes (Life-Threatening, Hospitalization, Other)
  Sender: FDA-Public Use
  Company Number: FR-B.Braun Medical Inc.-2142733

PATIENT
  Age: 64 Year
  Sex: Male
  Weight: 70 kg

DRUGS (13)
  1. METRONIDAZOLE [Suspect]
     Active Substance: METRONIDAZOLE
     Indication: Splenic infarction
     Route: 042
     Dates: start: 20220701, end: 20220704
  2. CELLCEPT [Suspect]
     Active Substance: MYCOPHENOLATE MOFETIL
  3. FLUCONAZOLE [Suspect]
     Active Substance: FLUCONAZOLE
  4. CILASTATIN SODIUM\IMIPENEM [Suspect]
     Active Substance: CILASTATIN SODIUM\IMIPENEM
  5. NEORAL [Suspect]
     Active Substance: CYCLOSPORINE
  6. AMIKACIN [Suspect]
     Active Substance: AMIKACIN
  7. ZOVIRAX [Suspect]
     Active Substance: ACYCLOVIR
  8. PIPERACILLIN AND TAZOBACTAM [Suspect]
     Active Substance: PIPERACILLIN SODIUM\TAZOBACTAM SODIUM
  9. VANCOMYCIN HYDROCHLORIDE [Suspect]
     Active Substance: VANCOMYCIN HYDROCHLORIDE
  10. FLUCONAZOLE [Suspect]
     Active Substance: FLUCONAZOLE
  11. LINEZOLID [Suspect]
     Active Substance: LINEZOLID
  12. CYCLOSPORINE [Suspect]
     Active Substance: CYCLOSPORINE
  13. PAXLOVID [Concomitant]
     Active Substance: NIRMATRELVIR\RITONAVIR

REACTIONS (3)
  - Off label use [Not Recovered/Not Resolved]
  - Coma [Recovered/Resolved]
  - Confusional state [Not Recovered/Not Resolved]
